FAERS Safety Report 13710043 (Version 1)
Quarter: 2017Q3

REPORT INFORMATION
  Report Type: Spontaneous
  Country: US (occurrence: US)
  Receive Date: 20170703
  Receipt Date: 20170703
  Transmission Date: 20171127
  Serious: No
  Sender: FDA-Public Use
  Company Number: US-TEVA-694108USA

PATIENT
  Sex: Female
  Weight: 45.4 kg

DRUGS (1)
  1. LIDOCAINE. [Suspect]
     Active Substance: LIDOCAINE
     Indication: PAIN
     Route: 062

REACTIONS (4)
  - Burning sensation [Unknown]
  - Application site erythema [Unknown]
  - Application site pain [Unknown]
  - Application site inflammation [Unknown]

NARRATIVE: CASE EVENT DATE: 2016
